FAERS Safety Report 8764577 (Version 1)
Quarter: 2012Q4

REPORT INFORMATION
  Report Type: 
  Country: US (occurrence: US)
  Receive Date: 20120831
  Receipt Date: 20120831
  Transmission Date: 20130627
  Serious: No
  Sender: FDA-Public Use
  Company Number: US-ASTRAZENECA-2011SE77800

PATIENT
  Age: 32 Year
  Sex: Male

DRUGS (2)
  1. SYMBICORT PMDI [Suspect]
     Dosage: 80/4.5 MCG, UNKNOWN FREQUENCY
     Route: 055
  2. RHINOCORT [Concomitant]
     Route: 045

REACTIONS (3)
  - Wheezing [Unknown]
  - Drug effect decreased [Unknown]
  - Chest discomfort [Unknown]
